FAERS Safety Report 9201705 (Version 3)
Quarter: 2015Q1

REPORT INFORMATION
  Report Type: Spontaneous
  Country: US (occurrence: US)
  Receive Date: 20130401
  Receipt Date: 20150113
  Transmission Date: 20150721
  Serious: Yes (Hospitalization, Other)
  Sender: FDA-Public Use
  Company Number: US-ASTRAZENECA-2013SE19611

PATIENT
  Age: 44 Year
  Sex: Female
  Weight: 87.1 kg

DRUGS (18)
  1. NEXIUM [Suspect]
     Active Substance: ESOMEPRAZOLE MAGNESIUM
     Indication: GASTROOESOPHAGEAL REFLUX DISEASE
     Route: 048
     Dates: start: 20130318
  2. CLARITIN [Concomitant]
     Active Substance: LORATADINE
     Indication: HYPERSENSITIVITY
     Dosage: PRN
  3. MYRBETRIQ [Concomitant]
     Active Substance: MIRABEGRON
     Indication: HYPERTONIC BLADDER
     Route: 048
     Dates: start: 201306
  4. IBUPROFEN. [Concomitant]
     Active Substance: IBUPROFEN
     Indication: MIGRAINE
     Dosage: PRN
  5. MAGNESIUM [Concomitant]
     Active Substance: MAGNESIUM
  6. VITAMIN D [Concomitant]
     Active Substance: CHOLECALCIFEROL
  7. STOOL SOFTENER [Concomitant]
     Active Substance: DOCUSATE CALCIUM
     Dosage: PRN
  8. NEXIUM [Suspect]
     Active Substance: ESOMEPRAZOLE MAGNESIUM
     Indication: GASTROOESOPHAGEAL REFLUX DISEASE
     Route: 048
     Dates: start: 2006
  9. NEXIUM [Suspect]
     Active Substance: ESOMEPRAZOLE MAGNESIUM
     Indication: GASTROOESOPHAGEAL REFLUX DISEASE
     Route: 048
     Dates: start: 201303
  10. COUMADIN [Concomitant]
     Active Substance: WARFARIN SODIUM
     Indication: COAGULOPATHY
  11. COUMADIN [Concomitant]
     Active Substance: WARFARIN SODIUM
     Indication: COAGULOPATHY
     Dates: end: 2013
  12. BAYER ASPIRIN HS [Concomitant]
  13. FISH OIL [Concomitant]
     Active Substance: FISH OIL
  14. MIRALAX [Concomitant]
     Active Substance: POLYETHYLENE GLYCOL 3350
  15. NEXIUM 24HR [Suspect]
     Active Substance: ESOMEPRAZOLE MAGNESIUM
     Route: 048
     Dates: start: 201412
  16. TYLENOL [Concomitant]
     Active Substance: ACETAMINOPHEN
     Indication: HEADACHE
     Dosage: PRN
  17. MVI [Concomitant]
     Active Substance: VITAMINS
  18. CACIUM [Concomitant]

REACTIONS (19)
  - Gastrooesophageal reflux disease [Unknown]
  - Fall [Unknown]
  - Diarrhoea [Unknown]
  - Headache [Unknown]
  - Thrombosis [Not Recovered/Not Resolved]
  - Chest discomfort [Unknown]
  - Weight increased [Unknown]
  - Migraine [Unknown]
  - Pain in extremity [Unknown]
  - Hypertonic bladder [Unknown]
  - Dyspepsia [Unknown]
  - Pain [Not Recovered/Not Resolved]
  - Peripheral swelling [Unknown]
  - Constipation [Unknown]
  - Pulmonary embolism [Unknown]
  - Polyp [Unknown]
  - Intentional product misuse [Unknown]
  - Incorrect drug administration duration [Unknown]
  - Throat irritation [Unknown]

NARRATIVE: CASE EVENT DATE: 2010
